FAERS Safety Report 9090380 (Version 1)
Quarter: 2013Q1

REPORT INFORMATION
  Report Type: Report from Study
  Country: US (occurrence: US)
  Receive Date: 20130201
  Receipt Date: 20130201
  Transmission Date: 20140127
  Serious: No
  Sender: FDA-Public Use
  Company Number: US-ABBOTT-12P-163-1020456-00

PATIENT
  Sex: Female

DRUGS (6)
  1. HUMIRA [Suspect]
     Indication: PSORIASIS
     Route: 058
  2. SINGULAIR [Concomitant]
     Indication: ASTHMA
  3. ADVAIR [Concomitant]
     Indication: ASTHMA
  4. LEXAPRO [Concomitant]
     Indication: DEPRESSION
  5. LEVOXYL [Concomitant]
     Indication: HYPOTHYROIDISM
  6. UNKNOWN BIRTH CONTROL PILL [Concomitant]
     Indication: PRODUCT USED FOR UNKNOWN INDICATION

REACTIONS (2)
  - Urinary tract infection [Recovered/Resolved]
  - Bronchitis [Not Recovered/Not Resolved]
